FAERS Safety Report 4600621-7 (Version None)
Quarter: 2005Q1

REPORT INFORMATION
  Report Type: 
  Country: None (occurrence: None)
  Receive Date: 20050304
  Receipt Date: 20050222
  Transmission Date: 20050727
  Serious: Yes (Hospitalization)
  Sender: FDA-Public Use
  Company Number: 2005037357

PATIENT
  Age: 52 Year
  Sex: Female
  Weight: 130 kg

DRUGS (11)
  1. ALDACTONE [Suspect]
     Indication: ILL-DEFINED DISORDER
     Dosage: 100 MG (50 MG, 2 IN 1 D), ORAL
     Route: 048
     Dates: end: 20040622
  2. LEVOTHYROXINE SODIUM [Suspect]
     Indication: ILL-DEFINED DISORDER
     Dosage: ORAL
     Route: 048
  3. ESTRADIOL [Suspect]
     Indication: ILL-DEFINED DISORDER
     Dosage: (EVERY 2 WEEKS)
  4. HYDROCHLOROTHIAZIDE [Suspect]
     Indication: ILL-DEFINED DISORDER
     Dosage: (2 IN 1 D), ORAL
     Route: 048
     Dates: end: 20040616
  5. NOMEGESTROL ACETATE (NOMEGESTROL ACETATE) [Suspect]
     Indication: ILL-DEFINED DISORDER
     Dosage: (CYCLIC), ORAL
     Route: 048
  6. LOSARTAN (LOSARTAN) [Suspect]
     Indication: ILL-DEFINED DISORDER
     Dosage: (2 IN 1 D), ORAL
     Route: 048
     Dates: end: 20040616
  7. TRIZIVIR [Suspect]
     Indication: ILL-DEFINED DISORDER
     Dosage: (2 IN 1 D), ORAL
     Route: 048
     Dates: start: 20020207
  8. ALPHA TOCOPHEROL ACETATE/GLYCEROL/LECITHIN/PY (GLYCEROL, LECITHIN, PYR [Concomitant]
  9. NADOLOL [Concomitant]
  10. VALACYCLOVIR HCL [Concomitant]
  11. CIPROFIBRATE (CIPROFIBRATE) [Concomitant]

REACTIONS (2)
  - DEEP VEIN THROMBOSIS [None]
  - PULMONARY EMBOLISM [None]
